FAERS Safety Report 21245976 (Version 2)
Quarter: 2022Q3

REPORT INFORMATION
  Report Type: Spontaneous
  Country: US (occurrence: US)
  Receive Date: 20220824
  Receipt Date: 20220923
  Transmission Date: 20221027
  Serious: No
  Sender: FDA-Public Use
  Company Number: US-BRISTOL-MYERS SQUIBB COMPANY-2022-094602

PATIENT
  Age: 82 Year
  Sex: Female
  Weight: 58.06 kg

DRUGS (1)
  1. REVLIMID [Suspect]
     Active Substance: LENALIDOMIDE
     Indication: Plasma cell myeloma
     Dosage: FREQUENCY: 3W, 1W OFF.
     Route: 048
     Dates: start: 20220701

REACTIONS (4)
  - Cough [Unknown]
  - White blood cell count decreased [Unknown]
  - Pyrexia [Unknown]
  - Oropharyngeal pain [Unknown]
